FAERS Safety Report 18920548 (Version 1)
Quarter: 2021Q1

REPORT INFORMATION
  Report Type: Spontaneous
  Country: FR (occurrence: FR)
  Receive Date: 20210222
  Receipt Date: 20210222
  Transmission Date: 20210420
  Serious: Yes (Hospitalization)
  Sender: FDA-Public Use
  Company Number: FR-SERB S.A.S.-2107094

PATIENT
  Age: 57 Year
  Sex: Female

DRUGS (12)
  1. UMULINE (INSULIN HUMAN ZINC SUSPENSION) [Concomitant]
  2. PARACETAMOL [Concomitant]
     Active Substance: ACETAMINOPHEN
  3. FUROSEMIDE. [Suspect]
     Active Substance: FUROSEMIDE
     Route: 042
     Dates: start: 20210115, end: 20210117
  4. CEFEPIME [Suspect]
     Active Substance: CEFEPIME HYDROCHLORIDE
     Route: 042
     Dates: start: 20210112, end: 20210118
  5. METRONIDAZOLE. [Suspect]
     Active Substance: METRONIDAZOLE
     Route: 042
     Dates: start: 20210113, end: 20210118
  6. URAPIDIL [Concomitant]
     Active Substance: URAPIDIL
  7. HEPARIN [Concomitant]
     Active Substance: HEPARIN SODIUM
  8. DEXAMETHASONE. [Concomitant]
     Active Substance: DEXAMETHASONE
  9. PANTOPRAZOLE SODIUM. [Concomitant]
     Active Substance: PANTOPRAZOLE SODIUM
  10. FLUCORTAC (FLUDROCORTISONE ACETATE) [Suspect]
     Active Substance: FLUDROCORTISONE ACETATE
     Route: 042
     Dates: start: 20210112, end: 20210117
  11. CYANOKIT [Suspect]
     Active Substance: HYDROXOCOBALAMIN
     Indication: HYPOVOLAEMIC SHOCK
     Route: 042
     Dates: start: 20210112, end: 20210112
  12. TRAMADOL. [Concomitant]
     Active Substance: TRAMADOL

REACTIONS (4)
  - Polyuria [Recovered/Resolved]
  - Chromaturia [Recovering/Resolving]
  - Product use in unapproved indication [Recovered/Resolved]
  - Proteinuria [Recovering/Resolving]

NARRATIVE: CASE EVENT DATE: 20210112
